FAERS Safety Report 4954962-4 (Version None)
Quarter: 2006Q1

REPORT INFORMATION
  Report Type: 
  Country: None (occurrence: None)
  Receive Date: 20060322
  Receipt Date: 20060306
  Transmission Date: 20060701
  Serious: Yes (Hospitalization)
  Sender: FDA-Public Use
  Company Number: 8014705

PATIENT
  Age: 57 Year
  Sex: Female

DRUGS (7)
  1. KEPPRA [Suspect]
     Indication: CONVULSION
     Dosage: 1000 MG 2/D PO
     Route: 048
     Dates: start: 20051121, end: 20060117
  2. KEPPRA [Suspect]
     Indication: CONVULSION
     Dosage: 1000 MG 2/D PO
     Route: 048
     Dates: start: 20060118, end: 20060120
  3. KEPPRA [Suspect]
     Indication: CONVULSION
     Dosage: 1000 MG 2/D PO
     Route: 048
     Dates: start: 20060121
  4. DEXAMETHASONE TAB [Concomitant]
  5. LEVAQUIN [Concomitant]
  6. ATIVAN [Concomitant]
  7. TYLENOL W/ CODEINE NO. 3 [Concomitant]

REACTIONS (6)
  - ABDOMINAL PAIN UPPER [None]
  - DECREASED APPETITE [None]
  - FUNGAL INFECTION [None]
  - GASTRIC DISORDER [None]
  - PHARMACEUTICAL PRODUCT COMPLAINT [None]
  - POOR QUALITY DRUG ADMINISTERED [None]
